FAERS Safety Report 25927352 (Version 2)
Quarter: 2025Q4

REPORT INFORMATION
  Report Type: Spontaneous
  Country: US (occurrence: US)
  Receive Date: 20251015
  Receipt Date: 20251202
  Transmission Date: 20260118
  Serious: Yes (Hospitalization)
  Sender: BIOGEN
  Company Number: US-BIOGEN-2021BI01039432

PATIENT
  Age: 28 Year
  Sex: Female
  Weight: 22.2 kg

DRUGS (8)
  1. SPINRAZA [Suspect]
     Active Substance: NUSINERSEN
     Indication: Spinal muscular atrophy
     Dosage: DOSAGE TEXT:LOADING DOSE
     Dates: start: 20180906
  2. SPINRAZA [Suspect]
     Active Substance: NUSINERSEN
     Dosage: DOSAGE TEXT:LOADING DOSE
  3. SPINRAZA [Suspect]
     Active Substance: NUSINERSEN
     Dosage: DOSAGE TEXT:LOADING DOSE
  4. SPINRAZA [Suspect]
     Active Substance: NUSINERSEN
     Dosage: DOSAGE TEXT:LOADING DOSE
  5. SPINRAZA [Suspect]
     Active Substance: NUSINERSEN
     Dosage: DOSAGE TEXT:MAINTENANCE DOSE
     Dates: start: 2018
  6. ESOMEPRAZOLE MAGNESIUM [Concomitant]
     Active Substance: ESOMEPRAZOLE MAGNESIUM
     Indication: Product used for unknown indication
     Dates: start: 20250328, end: 20250918
  7. NEURONTIN [Concomitant]
     Active Substance: GABAPENTIN
     Indication: Product used for unknown indication
     Dosage: DOSAGE TEXT:AS NEEDED
     Dates: start: 20210312, end: 20250918
  8. VITAMIN D3 [Concomitant]
     Active Substance: CHOLECALCIFEROL
     Indication: Product used for unknown indication
     Dosage: DOSAGE TEXT:AT BEDTIME AS NEEDED

REACTIONS (2)
  - Neuromuscular scoliosis [Unknown]
  - Dysphagia [Unknown]

NARRATIVE: CASE EVENT DATE: 20210301
